FAERS Safety Report 5855924-5 (Version None)
Quarter: 2008Q3

REPORT INFORMATION
  Report Type: 
  Country: None (occurrence: None)
  Receive Date: 20080825
  Receipt Date: 20080815
  Transmission Date: 20090109
  Serious: Yes (Other)
  Sender: FDA-Public Use
  Company Number: PHHY2008CO10644

PATIENT
  Sex: Male

DRUGS (1)
  1. GLEEVEC [Suspect]
     Indication: CHRONIC MYELOID LEUKAEMIA
     Dosage: 400 MG PER DAY
     Route: 048
     Dates: start: 20080501, end: 20080501

REACTIONS (4)
  - DEAFNESS [None]
  - DEAFNESS NEUROSENSORY [None]
  - DRUG TOXICITY [None]
  - VERTIGO [None]
